FAERS Safety Report 7258741-7 (Version None)
Quarter: 2011Q1

REPORT INFORMATION
  Report Type: 
  Country: None (occurrence: None)
  Receive Date: 20110129
  Receipt Date: 20100513
  Transmission Date: 20110831
  Serious: No
  Sender: FDA-Public Use
  Company Number: US-ABBOTT-10P-163-0645544-00

PATIENT
  Sex: Male
  Weight: 81.72 kg

DRUGS (2)
  1. HUMIRA [Suspect]
     Indication: RHEUMATOID ARTHRITIS
     Dates: start: 20091001, end: 20100301
  2. HUMIRA [Suspect]
     Dates: start: 20100301

REACTIONS (6)
  - INJECTION SITE PRURITUS [None]
  - DRUG INEFFECTIVE [None]
  - INJECTION SITE PAIN [None]
  - NODULE [None]
  - LOCAL SWELLING [None]
  - DEVICE MALFUNCTION [None]
